FAERS Safety Report 6238826-4 (Version None)
Quarter: 2009Q2

REPORT INFORMATION
  Report Type: 
  Country: None (occurrence: None)
  Receive Date: 20090617
  Receipt Date: 20090617
  Transmission Date: 20091009
  Serious: Yes (Other)
  Sender: FDA-Public Use
  Company Number: None

PATIENT
  Age: 46 Year
  Sex: Male
  Weight: 72.5755 kg

DRUGS (2)
  1. ZICAM NOSE GEL [Suspect]
     Indication: NASOPHARYNGITIS
     Dates: start: 20070110, end: 20090301
  2. ZICAM NOSE GEL [Suspect]
     Indication: PROPHYLAXIS
     Dates: start: 20070110, end: 20090301

REACTIONS (1)
  - ANOSMIA [None]
